FAERS Safety Report 25494248 (Version 1)
Quarter: 2025Q2

REPORT INFORMATION
  Report Type: Spontaneous
  Country: PL (occurrence: PL)
  Receive Date: 20250630
  Receipt Date: 20250630
  Transmission Date: 20250717
  Serious: Yes (Hospitalization)
  Sender: RANBAXY
  Company Number: PL-TACTICA-002_ACETYLCYSTEINE_2025

PATIENT
  Age: 78 Year
  Sex: Female

DRUGS (9)
  1. ESOMEPRAZOLE [Suspect]
     Active Substance: ESOMEPRAZOLE
     Indication: Abdominal pain
     Dosage: 40 MILLIGRAM, DAILY
     Route: 048
  2. QUETIAPINE [Suspect]
     Active Substance: QUETIAPINE
     Indication: Insomnia
     Dosage: 50 MILLIGRAM, DAILY
     Route: 048
  3. TELMISARTAN [Concomitant]
     Active Substance: TELMISARTAN
     Indication: Hypertension
     Route: 048
  4. INDAPAMIDE [Concomitant]
     Active Substance: INDAPAMIDE
     Indication: Hypertension
     Route: 048
  5. DAPAGLIFLOZIN [Concomitant]
     Active Substance: DAPAGLIFLOZIN
     Indication: Type 2 diabetes mellitus
     Route: 048
  6. METFORMIN [Concomitant]
     Active Substance: METFORMIN HYDROCHLORIDE
     Indication: Type 2 diabetes mellitus
     Route: 048
  7. AMBROXOL [Interacting]
     Active Substance: AMBROXOL
     Indication: Productive cough
     Route: 065
  8. ACETYLCYSTEINE [Interacting]
     Active Substance: ACETYLCYSTEINE
     Indication: Productive cough
     Route: 065
  9. ERDOSTEINE [Interacting]
     Active Substance: ERDOSTEINE
     Indication: Productive cough
     Route: 065

REACTIONS (2)
  - Pneumonia [Recovered/Resolved]
  - Drug interaction [Recovered/Resolved]
